FAERS Safety Report 7201856-X (Version None)
Quarter: 2010Q4

REPORT INFORMATION
  Report Type: 
  Country: None (occurrence: None)
  Receive Date: 20101229
  Receipt Date: 20101214
  Transmission Date: 20110411
  Serious: Yes (Disabling)
  Sender: FDA-Public Use
  Company Number: FR-CELGENEUS-056-21880-10100693

PATIENT
  Sex: Male

DRUGS (5)
  1. REVLIMID [Suspect]
     Route: 048
     Dates: start: 20100921, end: 20100930
  2. PREVISCAN [Concomitant]
     Indication: CARDIAC DISORDER
     Route: 048
     Dates: start: 20100201
  3. OMEPRAZOLE [Concomitant]
     Indication: GASTRITIS
     Route: 048
     Dates: start: 20090101
  4. COREG [Concomitant]
     Indication: HYPERTENSION
     Route: 048
     Dates: start: 20090101
  5. FUROSEMIDE [Concomitant]
     Indication: CARDIAC DISORDER
     Route: 065
     Dates: start: 20100101

REACTIONS (1)
  - HYPERTHYROIDISM [None]
